FAERS Safety Report 12644248 (Version 1)
Quarter: 2016Q3

REPORT INFORMATION
  Report Type: Spontaneous
  Country: FR (occurrence: FR)
  Receive Date: 20160811
  Receipt Date: 20160811
  Transmission Date: 20161109
  Serious: Yes (Hospitalization)
  Sender: FDA-Public Use
  Company Number: FR-SA-2016SA144851

PATIENT
  Age: 87 Year
  Sex: Male

DRUGS (2)
  1. PREVISCAN [Interacting]
     Active Substance: FLUINDIONE
     Route: 048
     Dates: end: 20160628
  2. PLAVIX [Suspect]
     Active Substance: CLOPIDOGREL BISULFATE
     Route: 048
     Dates: end: 20160630

REACTIONS (3)
  - Extradural haematoma [Recovered/Resolved with Sequelae]
  - Anaemia [Recovering/Resolving]
  - Drug interaction [Unknown]

NARRATIVE: CASE EVENT DATE: 20160628
